APPROVED DRUG PRODUCT: VINCRISTINE SULFATE
Active Ingredient: VINCRISTINE SULFATE
Strength: 2MG/VIAL
Dosage Form/Route: INJECTABLE;INJECTION
Application: A071560 | Product #001
Applicant: HOSPIRA INC
Approved: Apr 11, 1988 | RLD: No | RS: No | Type: DISCN